FAERS Safety Report 8220318-4 (Version None)
Quarter: 2012Q1

REPORT INFORMATION
  Report Type: 
  Country: None (occurrence: None)
  Receive Date: 20120320
  Receipt Date: 20120313
  Transmission Date: 20120608
  Serious: Yes (Life-Threatening, Hospitalization)
  Sender: FDA-Public Use
  Company Number: JP-SHIRE-ALL1-2011-04448

PATIENT
  Age: 57 Year
  Sex: Male

DRUGS (13)
  1. RABEPRAZOLE SODIUM [Concomitant]
     Indication: HYPERCHLORHYDRIA
     Dosage: UNK, UNKNOWN
     Route: 048
     Dates: start: 20111015
  2. FOSRENOL [Suspect]
     Indication: HYPERPHOSPHATAEMIA
     Dosage: 750 MG, UNKNOWN
     Route: 048
     Dates: start: 20100101, end: 20100205
  3. ALLEGRA [Concomitant]
     Indication: PRURITUS
     Dosage: UNK, UNKNOWN
     Route: 048
     Dates: start: 20100702
  4. MICARDIS [Concomitant]
     Indication: BLOOD PRESSURE INCREASED
     Dosage: 320 MG, 1X/WEEK
     Route: 048
     Dates: start: 20111001
  5. HARNAL D [Concomitant]
     Indication: DYSURIA
     Dosage: UNK, UNKNOWN
     Route: 048
     Dates: start: 20030422
  6. BROTIZOLAN [Concomitant]
     Indication: INSOMNIA
     Dosage: UNK, UNKNOWN
     Route: 048
     Dates: start: 20090207
  7. FOSRENOL [Suspect]
     Dosage: 1000 MG, UNKNOWN
     Route: 048
     Dates: start: 20101127, end: 20111016
  8. NORVASC [Concomitant]
     Indication: BLOOD PRESSURE INCREASED
     Dosage: UNK, UNKNOWN
     Route: 048
     Dates: start: 20110426, end: 20111021
  9. FOSRENOL [Suspect]
     Dosage: 1500 MG, UNKNOWN
     Route: 048
     Dates: start: 20100206, end: 20101126
  10. MUCODYNE [Concomitant]
     Indication: PRODUCTIVE COUGH
     Dosage: UNK, UNKNOWN
     Route: 048
     Dates: start: 20110820
  11. MICARDIS [Concomitant]
     Dosage: 120 MG, 1X/WEEK
     Route: 048
     Dates: start: 20111001
  12. PURSENNID                          /00142207/ [Suspect]
     Indication: CONSTIPATION PROPHYLAXIS
     Dosage: UNK, UNKNOWN
     Route: 065
     Dates: start: 20110426
  13. CALCIUM CARBONATE [Concomitant]
     Indication: HYPERPHOSPHATAEMIA
     Dosage: UNK, UNKNOWN
     Route: 048
     Dates: start: 20101009

REACTIONS (2)
  - SMALL INTESTINAL PERFORATION [None]
  - WRONG TECHNIQUE IN DRUG USAGE PROCESS [None]
